FAERS Safety Report 12704765 (Version 1)
Quarter: 2016Q3

REPORT INFORMATION
  Report Type: Spontaneous
  Country: GB (occurrence: GB)
  Receive Date: 20160831
  Receipt Date: 20160831
  Transmission Date: 20161109
  Serious: Yes (Other)
  Sender: FDA-Public Use
  Company Number: GB-GLAXOSMITHKLINE-GB2016124723

PATIENT
  Age: 63 Year
  Sex: Male
  Weight: 115 kg

DRUGS (14)
  1. SODIUM BICARBONATE. [Concomitant]
     Active Substance: SODIUM BICARBONATE
     Dosage: 1 GTT, BID, IN EACH EAR
     Dates: start: 20160608, end: 20160613
  2. RAMIPRIL. [Concomitant]
     Active Substance: RAMIPRIL
     Dosage: 2 DF, QD
     Dates: start: 20150604
  3. TILDIEM [Concomitant]
     Active Substance: DILTIAZEM HYDROCHLORIDE
     Dosage: 1 DF, QD
     Dates: start: 20150604
  4. ASPIRIN. [Concomitant]
     Active Substance: ASPIRIN
     Dosage: 1 DF, QD
     Dates: start: 20150604
  5. BISOPROLOL [Concomitant]
     Active Substance: BISOPROLOL
     Dosage: 1 DF, QD
     Dates: start: 20150604
  6. FLUTICASONE [Concomitant]
     Active Substance: FLUTICASONE\FLUTICASONE PROPIONATE
     Dosage: 2 DF, BID
     Route: 055
     Dates: start: 20160805
  7. SIMVASTATIN. [Concomitant]
     Active Substance: SIMVASTATIN
     Dosage: 1 DF, QD, AT NIGHT
     Dates: start: 20150604
  8. CLOPIDOGREL [Concomitant]
     Active Substance: CLOPIDOGREL BISULFATE
     Dosage: 1 DF, QD
     Dates: start: 20150604
  9. NICORANDIL [Concomitant]
     Active Substance: NICORANDIL
     Dosage: 1 DF, BID
     Dates: start: 20150604
  10. ANORO ELLIPTA [Suspect]
     Active Substance: UMECLIDINIUM BROMIDE\VILANTEROL TRIFENATATE
     Indication: PRODUCT USED FOR UNKNOWN INDICATION
     Dosage: UNK
     Route: 065
     Dates: start: 20160310
  11. GLYCERYL TRINITRATE [Concomitant]
     Active Substance: NITROGLYCERIN
     Dosage: 1 DF, UNK
     Dates: start: 20150604
  12. ISOSORBIDE MONONITRATE. [Concomitant]
     Active Substance: ISOSORBIDE MONONITRATE
     Dosage: 1 DF, BID
     Route: 065
     Dates: start: 20150604
  13. OMEPRAZOLE. [Concomitant]
     Active Substance: OMEPRAZOLE
     Dosage: 1 DF, BID
     Dates: start: 20150604
  14. SALBUTAMOL [Concomitant]
     Active Substance: ALBUTEROL
     Dosage: 2 DF, UNK
     Route: 055
     Dates: start: 20150604

REACTIONS (1)
  - Oral candidiasis [Recovering/Resolving]

NARRATIVE: CASE EVENT DATE: 20160817
